FAERS Safety Report 5365571-X (Version None)
Quarter: 2007Q2

REPORT INFORMATION
  Report Type: 
  Country: None (occurrence: None)
  Receive Date: 20070621
  Receipt Date: 20070608
  Transmission Date: 20071010
  Serious: Yes (Disabling)
  Sender: FDA-Public Use
  Company Number: GB-ASTRAZENECA-2007GB01212

PATIENT
  Age: 30 Year
  Sex: Female

DRUGS (1)
  1. QUETIAPINE [Suspect]
     Route: 048
     Dates: start: 20060907, end: 20060911

REACTIONS (1)
  - INFLUENZA LIKE ILLNESS [None]
